FAERS Safety Report 17874017 (Version 2)
Quarter: 2020Q3

REPORT INFORMATION
  Report Type: Spontaneous
  Country: JP (occurrence: JP)
  Receive Date: 20200609
  Receipt Date: 20200707
  Transmission Date: 20201103
  Serious: Yes (Hospitalization, Other)
  Sender: FDA-Public Use
  Company Number: JP-VIIV HEALTHCARE LIMITED-JP2020JPN094397

PATIENT
  Age: 50 Year
  Sex: Male

DRUGS (30)
  1. XYZAL [Concomitant]
     Active Substance: LEVOCETIRIZINE DIHYDROCHLORIDE
     Indication: ECZEMA
     Dosage: 5 MG, QD
     Route: 048
  2. NEOSTELIN GREEN MOUTHWASH SOLUTION [Concomitant]
     Dosage: UNK
  3. TIVICAY [Suspect]
     Active Substance: DOLUTEGRAVIR SODIUM
     Dosage: 50 UNK
     Route: 048
     Dates: start: 20200312, end: 20200408
  4. TIVICAY [Suspect]
     Active Substance: DOLUTEGRAVIR SODIUM
     Indication: HIV INFECTION
     Dosage: 50 MG, QD
     Route: 048
     Dates: start: 20140513, end: 20190213
  5. DEPAKENE?R TABLET [Concomitant]
     Active Substance: VALPROATE SODIUM
     Indication: BIPOLAR I DISORDER
     Dosage: 200 MG, BID
  6. PAXIL CR [Concomitant]
     Active Substance: PAROXETINE HYDROCHLORIDE
     Dosage: 12.5 MG
     Route: 048
     Dates: start: 20170525
  7. XYZAL [Concomitant]
     Active Substance: LEVOCETIRIZINE DIHYDROCHLORIDE
     Indication: DERMATITIS
     Dosage: 5 MG
     Route: 048
  8. FLAVERIC [Concomitant]
     Active Substance: BENPROPERINE PHOSPHATE
     Indication: BRONCHITIS
     Dosage: 20 MG, TID
  9. PIFELTRO [Concomitant]
     Active Substance: DORAVIRINE
     Indication: HIV INFECTION
     Dosage: 100 MG, QD
     Dates: start: 20200312
  10. AZILVA TABLETS [Concomitant]
     Indication: HYPERTENSION
     Dosage: 20 MG, QD
     Dates: start: 20191121, end: 20191218
  11. MEILAX TABLETS [Concomitant]
     Indication: DEPRESSIVE SYMPTOM
     Dosage: 1 MG, QD
  12. RESLIN TABLETS [Concomitant]
     Indication: DEPRESSION
     Dosage: 100 MG, QD
  13. AMOBAN TABLETS [Concomitant]
     Indication: INSOMNIA
     Dosage: 10 MG, QD
  14. CRAVIT TABLETS [Concomitant]
     Indication: BRONCHITIS
     Dosage: 500 MG, QD
  15. HUSCODE COMBINATION TABLETS [Concomitant]
     Indication: BRONCHITIS
     Dosage: 3 DF
  16. CALONAL TABLET [Concomitant]
     Indication: PYREXIA
     Dosage: 500 MG
  17. HIRUDOID SOFT OINTMENT [Concomitant]
     Dosage: UNK
  18. TAKECAB TABLETS [Concomitant]
     Indication: GASTRIC ULCER
     Dosage: 10 MG, QD
     Dates: start: 20200312
  19. BROTIZOLAM TABLETS [Concomitant]
     Indication: INSOMNIA
     Dosage: 0.25 MG
     Dates: start: 20170622
  20. JULUCA [Suspect]
     Active Substance: DOLUTEGRAVIR SODIUM\RILPIVIRINE HYDROCHLORIDE
     Indication: HIV INFECTION
     Dosage: 1 DF, QD
     Route: 048
     Dates: start: 20190214, end: 20200311
  21. ZACRAS HD [Concomitant]
     Active Substance: AMLODIPINE BESYLATE\AZILSARTAN
     Indication: HYPERTENSION
     Dosage: 1 DF, QD
     Dates: start: 20191219
  22. PAXIL CR [Concomitant]
     Active Substance: PAROXETINE HYDROCHLORIDE
     Indication: DEPRESSION
     Dosage: 12.5 MG, QD
     Route: 048
  23. PAXIL [Concomitant]
     Active Substance: PAROXETINE HYDROCHLORIDE
     Indication: DEPRESSION
     Dosage: 10 MG, QD
     Route: 048
  24. AUGMENTIN 125SS [Concomitant]
     Dosage: 1 DF, TID
  25. SAWACILLIN CAPSULES 250 [Concomitant]
     Indication: BRONCHITIS
     Dosage: 250 MG, TID
  26. ISENTRESS [Concomitant]
     Active Substance: RALTEGRAVIR POTASSIUM
     Indication: HIV INFECTION
     Dosage: 1200 MG, QD
     Dates: start: 20200409
  27. LORAMET [Concomitant]
     Active Substance: LORMETAZEPAM
     Indication: INSOMNIA
     Dosage: 2 MG, QD
  28. CARBOCISTEINE TABLETS [Concomitant]
     Active Substance: CARBOCYSTEINE
     Indication: BRONCHITIS
     Dosage: 500 MG, TID
  29. MONTELUKAST SODIUM TABLET [Concomitant]
     Active Substance: MONTELUKAST SODIUM
     Indication: RHINITIS ALLERGIC
     Dosage: 10 MG, QD
  30. ANTEBATE OINTMENT [Concomitant]
     Active Substance: BETAMETHASONE BUTYRATE PROPIONATE
     Dosage: UNK

REACTIONS (1)
  - Renal tubular disorder [Recovered/Resolved]

NARRATIVE: CASE EVENT DATE: 20200213
